FAERS Safety Report 15483140 (Version 4)
Quarter: 2019Q4

REPORT INFORMATION
  Report Type: Spontaneous
  Country: US (occurrence: US)
  Receive Date: 20181010
  Receipt Date: 20191204
  Transmission Date: 20200122
  Serious: No
  Sender: FDA-Public Use
  Company Number: US-PFIZER INC-2018404431

PATIENT
  Sex: Male

DRUGS (5)
  1. NAPROXEN SODIUM. [Suspect]
     Active Substance: NAPROXEN SODIUM
     Dosage: UNK
  2. REMICADE [Suspect]
     Active Substance: INFLIXIMAB
     Dosage: UNK
  3. HUMIRA [Suspect]
     Active Substance: ADALIMUMAB
     Dosage: UNK
  4. ENBREL [Suspect]
     Active Substance: ETANERCEPT
     Dosage: UNK
  5. METHOTREXATE SODIUM. [Suspect]
     Active Substance: METHOTREXATE SODIUM
     Dosage: UNK

REACTIONS (1)
  - Drug hypersensitivity [Unknown]
